FAERS Safety Report 9495178 (Version 2)
Quarter: 2013Q4

REPORT INFORMATION
  Report Type: Spontaneous
  Country: FR (occurrence: FR)
  Receive Date: 20130903
  Receipt Date: 20131101
  Transmission Date: 20140711
  Serious: Yes (Hospitalization)
  Sender: FDA-Public Use
  Company Number: FR-AMGEN-FRASP2013061344

PATIENT
  Age: 79 Year
  Sex: Male
  Weight: 77 kg

DRUGS (23)
  1. NEULASTA [Suspect]
     Indication: PRODUCT USED FOR UNKNOWN INDICATION
     Dosage: UNK, ONE TIME DOSE
     Route: 058
     Dates: start: 20130805, end: 20130805
  2. XARELTO [Suspect]
     Indication: PRODUCT USED FOR UNKNOWN INDICATION
     Dosage: UNK
     Route: 048
     Dates: start: 20130801, end: 20130806
  3. LEVACT [Suspect]
     Indication: PLASMA CELL MYELOMA
     Dosage: 220 MG/DAY AT DAY 1 AND DAY 2 (1 IN 1 DAY)
     Route: 042
     Dates: start: 20130731, end: 20130801
  4. ZOMETA [Suspect]
     Indication: PRODUCT USED FOR UNKNOWN INDICATION
     Dosage: UNK
     Route: 042
     Dates: start: 20130706, end: 20130706
  5. PREDNISONE [Concomitant]
     Indication: PLASMA CELL MYELOMA
     Dosage: UNK, DAY 1 TO DAY 4
     Dates: start: 20130731
  6. LOSARTAN POTASICO [Concomitant]
     Dosage: 100 MG/DAY, (1 IN 1 DAY)
     Route: 048
     Dates: end: 20130806
  7. FUROSEMIDE [Concomitant]
     Dosage: 40 MG/DAY (1 IN 1 DAY)
     Route: 048
     Dates: end: 20130806
  8. ESOMEPRAZOLE [Concomitant]
     Dosage: 40 MG/DAY, (1 IN 1 DAY)
     Route: 048
     Dates: end: 20130816
  9. VOGALENE [Concomitant]
     Dosage: 1 TO 3 /DAY
     Route: 048
     Dates: start: 20130802
  10. METEOSPASMYL                       /01017401/ [Concomitant]
     Dosage: 2 TABLETS 3 TIME/DAY (2 DOSAGE-FORMS, 3 IN 1 DAY)
     Route: 048
     Dates: end: 20130806
  11. BECLOSPIN [Concomitant]
     Dosage: UNK
     Route: 055
  12. LEDERFOLIN [Concomitant]
     Dosage: UNK
  13. KALEORID [Concomitant]
     Dosage: UNK
     Dates: end: 20130806
  14. BACTRIM [Concomitant]
     Dosage: UNK
  15. VALACICLOVIR [Concomitant]
     Dosage: UNK
  16. AMIODARON                          /00133101/ [Concomitant]
     Dosage: UNK
  17. TAMSULOSINE [Concomitant]
     Dosage: UNK
  18. OROCAL                             /00944201/ [Concomitant]
     Dosage: UNK
  19. OXYCONTIN [Concomitant]
     Dosage: UNK
  20. SOLUPRED                           /00016201/ [Concomitant]
     Dosage: UNK
  21. ATROVENT [Concomitant]
     Dosage: UNK
  22. VENTOLINE                          /00139501/ [Concomitant]
     Dosage: UNK
  23. OMNIPAQUE [Concomitant]
     Dosage: 250CC, UNK

REACTIONS (1)
  - Renal failure acute [Recovered/Resolved]
